FAERS Safety Report 10450908 (Version 2)
Quarter: 2014Q3

REPORT INFORMATION
  Report Type: Report from Study
  Country: TN (occurrence: TN)
  Receive Date: 20140912
  Receipt Date: 20140912
  Transmission Date: 20150326
  Serious: Yes (Hospitalization, Other)
  Sender: FDA-Public Use
  Company Number: TN-US-EMD SERONO, INC.-7284732

PATIENT
  Age: 46 Year
  Sex: Female

DRUGS (2)
  1. REBIF [Suspect]
     Active Substance: INTERFERON BETA-1A
     Indication: MULTIPLE SCLEROSIS
     Dates: start: 20140314
  2. VITAMIN E                          /00110501/ [Concomitant]
     Indication: PRODUCT USED FOR UNKNOWN INDICATION

REACTIONS (5)
  - Insomnia [Not Recovered/Not Resolved]
  - Hyperglycaemia [Recovered/Resolved]
  - Diabetes mellitus [Unknown]
  - Influenza like illness [Not Recovered/Not Resolved]
  - Gait disturbance [Recovering/Resolving]

NARRATIVE: CASE EVENT DATE: 20140410
